FAERS Safety Report 22905022 (Version 3)
Quarter: 2023Q4

REPORT INFORMATION
  Report Type: Report from Study
  Country: US (occurrence: US)
  Receive Date: 20230905
  Receipt Date: 20231003
  Transmission Date: 20240110
  Serious: Yes (Hospitalization)
  Sender: FDA-Public Use
  Company Number: US-ABBVIE-5355594

PATIENT
  Sex: Female

DRUGS (3)
  1. RINVOQ [Suspect]
     Active Substance: UPADACITINIB
     Indication: Rheumatoid arthritis
     Dosage: RINVOQ EXTENDED RELEASE?FORM STRENGTH: 15 MILLIGRAM
     Route: 048
     Dates: start: 20230921
  2. RINVOQ [Suspect]
     Active Substance: UPADACITINIB
     Indication: Rheumatoid arthritis
     Dosage: FORM STRENGTH: 15 MILLIGRAM THERAPY END DATE 2023?RINVOQ EXTENDED RELEASE
     Route: 048
     Dates: start: 202306
  3. AUGMENTIN [Concomitant]
     Active Substance: AMOXICILLIN\CLAVULANATE POTASSIUM
     Indication: Product used for unknown indication

REACTIONS (10)
  - Dizziness [Recovered/Resolved]
  - Goitre [Recovered/Resolved]
  - Tonsillitis [Recovered/Resolved]
  - Swelling [Recovering/Resolving]
  - Upper respiratory tract infection [Recovered/Resolved]
  - Conjunctivitis [Recovered/Resolved]
  - Gait disturbance [Recovered/Resolved]
  - Ear infection [Recovered/Resolved]
  - Periorbital swelling [Recovered/Resolved]
  - Musculoskeletal stiffness [Recovering/Resolving]

NARRATIVE: CASE EVENT DATE: 20230101
